FAERS Safety Report 10027049 (Version 3)
Quarter: 2014Q3

REPORT INFORMATION
  Report Type: Spontaneous
  Country: IT (occurrence: None)
  Receive Date: 20140318
  Receipt Date: 20140701
  Transmission Date: 20150326
  Serious: Yes (Life-Threatening)
  Sender: FDA-Public Use
  Company Number: AUR-APL-2014-02893

PATIENT
  Age: 66 Year
  Sex: Female

DRUGS (7)
  1. SIMVASTATIN (SIMVASTATIN) [Concomitant]
     Active Substance: SIMVASTATIN
  2. LANSOPRAZOLE (LANSOPRAZOLE) [Concomitant]
     Active Substance: LANSOPRAZOLE
  3. QUINAPRIL EG (QUINAPRIL HYDROCHLORIDE) [Concomitant]
  4. VYTORIN (INEGY) [Concomitant]
  5. METFORMIN [Suspect]
     Active Substance: METFORMIN HYDROCHLORIDE
     Indication: TYPE 2 DIABETES MELLITUS
     Route: 048
     Dates: start: 20040101, end: 20140226
  6. CARDIOASPIRIN (ACETYLSALICYLIC ACID) [Concomitant]
     Active Substance: ASPIRIN
     Indication: DIABETES MELLITUS
  7. JANUMET [Suspect]
     Active Substance: METFORMIN HYDROCHLORIDE\SITAGLIPTIN PHOSPHATE
     Indication: DIABETES MELLITUS
     Dosage: 50 MG/1000 MG (1 DOSAGE FORMS, 1 D), ORAL
     Route: 048

REACTIONS (8)
  - Metabolic acidosis [None]
  - Pyrexia [None]
  - Blood glucose decreased [None]
  - Drug interaction [None]
  - Haemodialysis [None]
  - Apparent life threatening event [None]
  - Vomiting [None]
  - Diarrhoea [None]

NARRATIVE: CASE EVENT DATE: 20140221
